FAERS Safety Report 12796650 (Version 1)
Quarter: 2016Q3

REPORT INFORMATION
  Report Type: Spontaneous
  Country: FR (occurrence: FR)
  Receive Date: 20160929
  Receipt Date: 20160929
  Transmission Date: 20161109
  Serious: Yes (Life-Threatening, Hospitalization)
  Sender: FDA-Public Use
  Company Number: FR-PFIZER INC-2016439113

PATIENT
  Age: 51 Year
  Sex: Female
  Weight: 67 kg

DRUGS (8)
  1. DOCETAXEL. [Suspect]
     Active Substance: DOCETAXEL
     Dosage: 50 MG/M2, CYCLIC (CUMULATED DOSE OF 95 MG)
     Route: 042
     Dates: start: 20160506, end: 20160715
  2. EPIRUBICIN [Concomitant]
     Active Substance: EPIRUBICIN
     Dosage: 50 MG/M2, CYCLIC (CUMULATED DOSE OF 95 MG) (EVERY 14 DAYS)
     Dates: start: 20160506, end: 20160715
  3. CEFTRIAXONE. [Concomitant]
     Active Substance: CEFTRIAXONE
     Dosage: UNK
  4. NIVESTIM [Suspect]
     Active Substance: FILGRASTIM
     Dosage: UNK, SINGLE
     Route: 058
     Dates: start: 20160720, end: 20160720
  5. OMEPRAZOLE. [Concomitant]
     Active Substance: OMEPRAZOLE
     Dosage: FOR ABOUT 15 DAYS
     Dates: start: 201607
  6. VANCOMYCIN [Concomitant]
     Active Substance: VANCOMYCIN
     Dosage: UNK
     Dates: start: 20160724
  7. AMIKACIN [Concomitant]
     Active Substance: AMIKACIN
  8. GENTAMICIN. [Concomitant]
     Active Substance: GENTAMICIN
     Dosage: UNK
     Dates: start: 20160724

REACTIONS (2)
  - Interstitial lung disease [Recovered/Resolved]
  - Hypoxia [Recovered/Resolved]

NARRATIVE: CASE EVENT DATE: 20160726
